FAERS Safety Report 7746159-X (Version None)
Quarter: 2011Q3

REPORT INFORMATION
  Report Type: 
  Country: None (occurrence: None)
  Receive Date: 20110913
  Receipt Date: 20110902
  Transmission Date: 20111222
  Serious: Yes (Other)
  Sender: FDA-Public Use
  Company Number: US-ROCHE-781548

PATIENT
  Sex: Female
  Weight: 79.4 kg

DRUGS (3)
  1. ZOMETA [Suspect]
     Indication: OSTEOPENIA
     Route: 042
     Dates: start: 20090423, end: 20100315
  2. BONIVA [Suspect]
     Indication: OSTEOPENIA
     Dosage: DOSE: 150.
     Route: 048
     Dates: start: 20100507, end: 20101213
  3. ACTONEL [Suspect]
     Indication: OSTEOPENIA
     Dosage: DOSE: 35
     Route: 048
     Dates: start: 20060310, end: 20080401

REACTIONS (4)
  - BONE PAIN [None]
  - EXOSTOSIS [None]
  - ARTHRITIS [None]
  - DYSPHAGIA [None]
